FAERS Safety Report 23054583 (Version 2)
Quarter: 2023Q4

REPORT INFORMATION
  Report Type: Spontaneous
  Country: US (occurrence: US)
  Receive Date: 20231011
  Receipt Date: 20231117
  Transmission Date: 20240109
  Serious: No
  Sender: FDA-Public Use
  Company Number: US-SA-SAC20231009001029

PATIENT
  Age: 25 Year
  Sex: Male

DRUGS (1)
  1. DUPIXENT [Suspect]
     Active Substance: DUPILUMAB
     Indication: Eosinophilic oesophagitis
     Dosage: 300 MG QW
     Route: 058
     Dates: start: 202309, end: 202310

REACTIONS (5)
  - Headache [Unknown]
  - Eosinophilic oesophagitis [Unknown]
  - Glossitis [Recovering/Resolving]
  - Tongue discomfort [Unknown]
  - Rash [Unknown]

NARRATIVE: CASE EVENT DATE: 20230101
